FAERS Safety Report 13494071 (Version 1)
Quarter: 2017Q2

REPORT INFORMATION
  Report Type: Spontaneous
  Country: DE (occurrence: DE)
  Receive Date: 20170428
  Receipt Date: 20170428
  Transmission Date: 20170830
  Serious: Yes (Other)
  Sender: FDA-Public Use
  Company Number: DE-ROCHE-1926365

PATIENT
  Age: 56 Year
  Sex: Female

DRUGS (3)
  1. GEMCITABINE [Suspect]
     Active Substance: GEMCITABINE\GEMCITABINE HYDROCHLORIDE
     Indication: OVARIAN CANCER
     Dosage: SECOND LINE THERAPY
     Route: 065
  2. AVASTIN [Suspect]
     Active Substance: BEVACIZUMAB
     Indication: OVARIAN CANCER
     Dosage: SECOND LINE THERAPY
     Route: 065
  3. CARBOPLATIN. [Suspect]
     Active Substance: CARBOPLATIN
     Indication: OVARIAN CANCER
     Dosage: SECOND LINE THERAPY
     Route: 065

REACTIONS (1)
  - Renal failure [Unknown]
